FAERS Safety Report 23218822 (Version 1)
Quarter: 2023Q4

REPORT INFORMATION
  Report Type: Spontaneous
  Country: CZ (occurrence: None)
  Receive Date: 20231122
  Receipt Date: 20231122
  Transmission Date: 20240109
  Serious: Yes (Hospitalization, Other)
  Sender: FDA-Public Use
  Company Number: 2023A261781

PATIENT
  Sex: Male
  Weight: 74 kg

DRUGS (1)
  1. DAPAGLIFLOZIN [Suspect]
     Active Substance: DAPAGLIFLOZIN
     Dosage: 10.0MG UNKNOWN
     Route: 048
     Dates: start: 20230610, end: 20231024

REACTIONS (9)
  - Joint swelling [Unknown]
  - Rosacea [Unknown]
  - Weight decreased [Unknown]
  - Skin ulcer [Unknown]
  - Erysipelas [Unknown]
  - Gait disturbance [Unknown]
  - Brain fog [Unknown]
  - Polydipsia [Unknown]
  - Pollakiuria [Unknown]
